FAERS Safety Report 25740672 (Version 1)
Quarter: 2025Q3

REPORT INFORMATION
  Report Type: Spontaneous
  Country: JP (occurrence: JP)
  Receive Date: 20250829
  Receipt Date: 20250829
  Transmission Date: 20251021
  Serious: Yes (Death)
  Sender: AMGEN
  Company Number: JP-AMGEN-JPNSP2025169402

PATIENT
  Age: 69 Year
  Sex: Male
  Weight: 55 kg

DRUGS (17)
  1. IMDELLTRA [Suspect]
     Active Substance: TARLATAMAB-DLLE
     Indication: Small cell lung cancer
     Dosage: 1 MILLIGRAM, QD (ONCE DAILY)
     Route: 040
     Dates: start: 20250619, end: 20250619
  2. METHYLCOBALAMIN [Concomitant]
     Active Substance: METHYLCOBALAMIN
  3. VOLTAREN [Concomitant]
     Active Substance: DICLOFENAC SODIUM
  4. BEZAFIBRATE [Concomitant]
     Active Substance: BEZAFIBRATE
  5. Novamin [Concomitant]
  6. DAYVIGO [Concomitant]
     Active Substance: LEMBOREXANT
  7. RAMELTEON [Concomitant]
     Active Substance: RAMELTEON
  8. LANSOPRAZOLE [Concomitant]
     Active Substance: LANSOPRAZOLE
  9. FENTANYL [Concomitant]
     Active Substance: FENTANYL
     Dates: start: 20250617, end: 20250627
  10. FENTANYL [Concomitant]
     Active Substance: FENTANYL
     Dates: start: 20250627, end: 20250703
  11. DICLOFENAC SODIUM [Concomitant]
     Active Substance: DICLOFENAC SODIUM
     Dates: start: 20250608, end: 20250623
  12. Oxinorm [Concomitant]
     Dates: start: 20250609, end: 20250703
  13. NAUZELIN [Concomitant]
     Active Substance: DOMPERIDONE
     Dates: start: 20250613, end: 20250620
  14. ACETAMINOPHEN [Concomitant]
     Active Substance: ACETAMINOPHEN
     Route: 040
     Dates: start: 20250607, end: 20250701
  15. CEFMETAZOLE SODIUM [Concomitant]
     Active Substance: CEFMETAZOLE SODIUM
     Route: 040
     Dates: start: 20250618, end: 20250708
  16. DEXAMETHASONE [Concomitant]
     Active Substance: DEXAMETHASONE
     Route: 040
     Dates: start: 20250619
  17. SALINE [Concomitant]
     Active Substance: SODIUM CHLORIDE
     Route: 065
     Dates: start: 20250619

REACTIONS (1)
  - Liver disorder [Fatal]

NARRATIVE: CASE EVENT DATE: 20250620
